FAERS Safety Report 7932597-9 (Version None)
Quarter: 2011Q4

REPORT INFORMATION
  Report Type: 
  Country: None (occurrence: None)
  Receive Date: 20111122
  Receipt Date: 20070725
  Transmission Date: 20120403
  Serious: No
  Sender: FDA-Public Use
  Company Number: 2007BI016009

PATIENT
  Age: 52 Year
  Sex: Female

DRUGS (15)
  1. TYSABRI [Suspect]
     Indication: MULTIPLE SCLEROSIS
     Route: 042
     Dates: start: 20070122
  2. BACLOFEN [Concomitant]
  3. LASIX [Concomitant]
  4. PROVIGIL [Concomitant]
  5. POTASSIUM CHLORIDE [Concomitant]
  6. ASPIRIN [Concomitant]
  7. COZAAR [Concomitant]
  8. CELEXA [Concomitant]
  9. SUCRALFATE [Concomitant]
  10. PREVACID [Concomitant]
  11. CLINDAMYCIN [Concomitant]
  12. MINERAL OIL [Concomitant]
  13. DETROL [Concomitant]
  14. LIPITOR [Concomitant]
  15. COREG [Concomitant]

REACTIONS (6)
  - RESPIRATORY TRACT INFECTION [None]
  - PYREXIA [None]
  - INFLUENZA LIKE ILLNESS [None]
  - FATIGUE [None]
  - HERPES ZOSTER [None]
  - ARTHRALGIA [None]
